FAERS Safety Report 4633042-1 (Version None)
Quarter: 2005Q2

REPORT INFORMATION
  Report Type: 
  Country: None (occurrence: None)
  Receive Date: 20050412
  Receipt Date: 20050216
  Transmission Date: 20051028
  Serious: Yes (Death)
  Sender: FDA-Public Use
  Company Number: US-BRISTOL-MYERS SQUIBB COMPANY-12865036

PATIENT
  Age: 25 Year
  Sex: Female

DRUGS (1)
  1. TAXOL [Suspect]
     Indication: CERVIX CARCINOMA
     Route: 042
     Dates: start: 20040128, end: 20040408

REACTIONS (2)
  - CERVIX CARCINOMA [None]
  - MALIGNANT NEOPLASM PROGRESSION [None]
